FAERS Safety Report 6994496-9 (Version None)
Quarter: 2010Q3

REPORT INFORMATION
  Report Type: 
  Country: None (occurrence: None)
  Receive Date: 20100917
  Receipt Date: 20100907
  Transmission Date: 20110219
  Serious: Yes (Hospitalization, Other)
  Sender: FDA-Public Use
  Company Number: US-JNJFOC-20100600789

PATIENT
  Sex: Male

DRUGS (6)
  1. DURAGESIC-100 [Suspect]
     Indication: PAIN
     Route: 062
  2. DURAGESIC-100 [Suspect]
     Route: 062
  3. PERCOCET [Concomitant]
     Indication: PAIN
     Route: 048
  4. OXYCONTIN [Concomitant]
     Indication: PAIN
     Route: 048
  5. LYRICA [Concomitant]
     Indication: PAIN
     Route: 048
  6. AMITRIPTYLINE HCL [Concomitant]
     Route: 065

REACTIONS (9)
  - APHAGIA [None]
  - BONE PAIN [None]
  - FACIAL BONES FRACTURE [None]
  - FRACTURE [None]
  - HYPERTENSION [None]
  - MUSCLE SPASMS [None]
  - PAIN [None]
  - PRODUCT QUALITY ISSUE [None]
  - VENTRICULAR TACHYCARDIA [None]
